FAERS Safety Report 16776543 (Version 1)
Quarter: 2019Q3

REPORT INFORMATION
  Report Type: Report from Study
  Country: IT (occurrence: IT)
  Receive Date: 20190905
  Receipt Date: 20190905
  Transmission Date: 20191005
  Serious: Yes (Other)
  Sender: FDA-Public Use
  Company Number: IT-PFIZER INC-2019373703

PATIENT

DRUGS (1)
  1. LEVETIRACETAM. [Suspect]
     Active Substance: LEVETIRACETAM
     Indication: EPILEPSY
     Dosage: 500 MG, DAILY
     Route: 064

REACTIONS (4)
  - Maternal exposure during pregnancy [Unknown]
  - Trisomy 21 [Unknown]
  - Congenital anomaly [Unknown]
  - Cytogenetic abnormality [Unknown]
